FAERS Safety Report 7477604-5 (Version None)
Quarter: 2011Q2

REPORT INFORMATION
  Report Type: 
  Country: None (occurrence: None)
  Receive Date: 20110505
  Receipt Date: 20110425
  Transmission Date: 20111010
  Serious: Yes (Hospitalization, Other)
  Sender: FDA-Public Use
  Company Number: TRP_07697_2011

PATIENT
  Sex: Female

DRUGS (3)
  1. PREVACID [Concomitant]
  2. PEG-INTRON [Suspect]
     Indication: HEPATITIS C
     Dosage: SUBCUTANEOUS
     Route: 058
     Dates: start: 20101210
  3. RIBASPHERE [Suspect]
     Indication: HEPATITIS C
     Dates: start: 20101210

REACTIONS (4)
  - MYALGIA [None]
  - ARTHRALGIA [None]
  - BIPOLAR DISORDER [None]
  - DEPRESSION [None]
